FAERS Safety Report 7713455-1 (Version None)
Quarter: 2011Q3

REPORT INFORMATION
  Report Type: 
  Country: None (occurrence: None)
  Receive Date: 20110826
  Receipt Date: 20110816
  Transmission Date: 20111222
  Serious: Yes (Other)
  Sender: FDA-Public Use
  Company Number: DE-PFIZER INC-2011129716

PATIENT
  Age: 42 Year
  Sex: Female
  Weight: 89.8 kg

DRUGS (7)
  1. CYTARABINE [Suspect]
     Indication: ACUTE MYELOID LEUKAEMIA
     Dosage: 204 MG, DAILY
     Dates: start: 20110506, end: 20110512
  2. POSACONAZOLE [Suspect]
     Indication: ANTIBIOTIC THERAPY
     Dosage: 5 ML, 3X/DAY
     Route: 048
     Dates: start: 20110504, end: 20110524
  3. IDARUBICIN HCL [Suspect]
     Indication: ACUTE MYELOID LEUKAEMIA
     Dosage: 24.5 MG, DAILY
     Dates: start: 20110506, end: 20110510
  4. TRETINOIN [Suspect]
     Dosage: 10 MG, 3X/DAY
     Dates: start: 20110514, end: 20110526
  5. LEVOFLOXACIN [Suspect]
     Indication: ANTIBIOTIC THERAPY
     Dosage: 500 MG, DAILY
     Route: 048
     Dates: start: 20110504, end: 20110513
  6. ETOPOSIDE [Suspect]
     Indication: ACUTE MYELOID LEUKAEMIA
     Dosage: 204 MG, DAILY
     Dates: start: 20110506, end: 20110508
  7. TRETINOIN [Suspect]
     Indication: ACUTE MYELOID LEUKAEMIA
     Dosage: 30 MG, 3X/DAY
     Dates: start: 20110511, end: 20110513

REACTIONS (1)
  - HYPERBILIRUBINAEMIA [None]
